FAERS Safety Report 6516093-1 (Version None)
Quarter: 2009Q4

REPORT INFORMATION
  Report Type: 
  Country: None (occurrence: None)
  Receive Date: 20091223
  Receipt Date: 20091214
  Transmission Date: 20100525
  Serious: No
  Sender: FDA-Public Use
  Company Number: US-B.I. PHARMACEUTICALS,INC./RIDGEFIELD-2009-BP-14341BP

PATIENT
  Sex: Female

DRUGS (1)
  1. SPIRIVA [Suspect]
     Indication: CHRONIC OBSTRUCTIVE PULMONARY DISEASE
     Dosage: 18 MCG
     Route: 048
     Dates: start: 20050101

REACTIONS (5)
  - ABDOMINAL DISCOMFORT [None]
  - DIARRHOEA [None]
  - INCORRECT ROUTE OF DRUG ADMINISTRATION [None]
  - RECTAL HAEMORRHAGE [None]
  - VOMITING [None]
